FAERS Safety Report 23666221 (Version 1)
Quarter: 2024Q1

REPORT INFORMATION
  Report Type: Spontaneous
  Country: FR (occurrence: FR)
  Receive Date: 20240324
  Receipt Date: 20240324
  Transmission Date: 20240409
  Serious: Yes (Hospitalization)
  Sender: FDA-Public Use
  Company Number: FR-ROCHE-3524120

PATIENT
  Age: 59 Year
  Sex: Female
  Weight: 78 kg

DRUGS (4)
  1. BEVACIZUMAB [Suspect]
     Active Substance: BEVACIZUMAB
     Indication: Neoplasm malignant
     Dosage: DOSE OF LAST CANCER TREATMENT 3 ADMINISTERED PRIOR TO AE/SAE ONSET 575 MG
     Route: 042
     Dates: start: 20231003
  2. CISPLATIN [Suspect]
     Active Substance: CISPLATIN
     Indication: Neoplasm malignant
     Dosage: DOSE OF LAST CANCER TREATMENT 1 ADMINISTERED PRIOR TO AE/SAE ONSET 147 MG
     Route: 042
     Dates: start: 20231003, end: 20231128
  3. PEMETREXED [Suspect]
     Active Substance: PEMETREXED
     Indication: Neoplasm malignant
     Dosage: DOSE OF LAST CANCER TREATMENT 2 ADMINISTERED PRIOR TO AE/SAE ONSET 975 MG
     Route: 042
     Dates: start: 20231003
  4. FOLIC ACID [Concomitant]
     Active Substance: FOLIC ACID
     Indication: Product used for unknown indication
     Dosage: UNK
     Route: 065

REACTIONS (2)
  - Small intestinal obstruction [Recovered/Resolved]
  - Abdominal pain [Recovered/Resolved]

NARRATIVE: CASE EVENT DATE: 20231010
